FAERS Safety Report 21258026 (Version 1)
Quarter: 2022Q3

REPORT INFORMATION
  Report Type: Spontaneous
  Country: FR (occurrence: FR)
  Receive Date: 20220826
  Receipt Date: 20220826
  Transmission Date: 20221027
  Serious: Yes (Death)
  Sender: FDA-Public Use
  Company Number: FR-ELI_LILLY_AND_COMPANY-NO202208013042

PATIENT
  Age: 46 Year
  Sex: Male

DRUGS (3)
  1. ALIMTA [Suspect]
     Active Substance: PEMETREXED DISODIUM
     Indication: Metastatic bronchial carcinoma
     Dosage: 775 MG, CYCLICAL
     Route: 042
     Dates: start: 20220727
  2. CISPLATIN [Suspect]
     Active Substance: CISPLATIN
     Indication: Metastatic bronchial carcinoma
     Dosage: 117 MG, CYCLICAL
     Route: 042
     Dates: start: 20220727
  3. KEYTRUDA [Suspect]
     Active Substance: PEMBROLIZUMAB
     Indication: Metastatic bronchial carcinoma
     Dosage: 200 MG, OTHER, EVERY TRIMESTER
     Route: 042
     Dates: start: 20220727

REACTIONS (2)
  - Colitis [Fatal]
  - Pancytopenia [Fatal]

NARRATIVE: CASE EVENT DATE: 20220804
